FAERS Safety Report 4379432-6 (Version None)
Quarter: 2004Q2

REPORT INFORMATION
  Report Type: 
  Country: None (occurrence: None)
  Receive Date: 20040610
  Receipt Date: 20040601
  Transmission Date: 20050107
  Serious: Yes (Other)
  Sender: FDA-Public Use
  Company Number: HQWYE240103JUN04

PATIENT
  Age: 20 Year
  Sex: Female
  Weight: 57.2 kg

DRUGS (1)
  1. ALAVERT [Suspect]
     Indication: HYPERSENSITIVITY
     Dosage: 1 TAB DAILY, ORAL
     Route: 048
     Dates: start: 20040528, end: 20040531

REACTIONS (3)
  - RASH ERYTHEMATOUS [None]
  - RASH PAPULAR [None]
  - URTICARIA [None]
